FAERS Safety Report 8201766-5 (Version None)
Quarter: 2012Q1

REPORT INFORMATION
  Report Type: 
  Country: None (occurrence: None)
  Receive Date: 20120312
  Receipt Date: 20120309
  Transmission Date: 20120608
  Serious: Yes (Death)
  Sender: FDA-Public Use
  Company Number: EC-ROCHE-1047342

PATIENT
  Sex: Female
  Weight: 49.94 kg

DRUGS (1)
  1. BONIVA [Suspect]
     Indication: OSTEOPOROSIS
     Route: 042
     Dates: start: 20110217

REACTIONS (2)
  - BONE PAIN [None]
  - GASTRIC CANCER [None]
